FAERS Safety Report 23600048 (Version 1)
Quarter: 2024Q1

REPORT INFORMATION
  Report Type: Spontaneous
  Country: CN (occurrence: CN)
  Receive Date: 20240306
  Receipt Date: 20240306
  Transmission Date: 20240410
  Serious: Yes (Other)
  Sender: FDA-Public Use
  Company Number: CN-HALEON-CNCH2024APC011180

PATIENT
  Age: 30 Year
  Sex: Female
  Weight: 51 kg

DRUGS (2)
  1. DICLOFENAC SODIUM [Suspect]
     Active Substance: DICLOFENAC\DICLOFENAC SODIUM
     Indication: Arthralgia
     Dosage: 1 DOSAGE FORM, QD (SUSTAINED-RELEASE TABLET)
     Route: 048
     Dates: start: 20240225, end: 20240225
  2. CHLORZOXAZONE [Suspect]
     Active Substance: CHLORZOXAZONE
     Indication: Arthralgia
     Dosage: 0.6 G, QD (0.2 G, TID)
     Route: 048
     Dates: start: 20240225, end: 20240225

REACTIONS (3)
  - Rash [Recovered/Resolved]
  - Pruritus [Recovered/Resolved]
  - Pain [Recovering/Resolving]

NARRATIVE: CASE EVENT DATE: 20240225
